FAERS Safety Report 14659564 (Version 4)
Quarter: 2018Q3

REPORT INFORMATION
  Report Type: Report from Study
  Country: US (occurrence: US)
  Receive Date: 20180320
  Receipt Date: 20180720
  Transmission Date: 20181010
  Serious: Yes (Hospitalization, Other)
  Sender: FDA-Public Use
  Company Number: PHEH2018US009960

PATIENT
  Age: 76 Year
  Sex: Male
  Weight: 73.8 kg

DRUGS (25)
  1. CALCIUM [Concomitant]
     Active Substance: CALCIUM
     Indication: PRODUCT USED FOR UNKNOWN INDICATION
     Dosage: 1 DF, QD (EVERY EVENING)
     Route: 048
  2. NIFEDIPINE. [Concomitant]
     Active Substance: NIFEDIPINE
     Indication: PRODUCT USED FOR UNKNOWN INDICATION
     Dosage: 1 DF, QD
     Route: 048
  3. ROXICODONE [Concomitant]
     Active Substance: OXYCODONE HYDROCHLORIDE
     Indication: PAIN
     Dosage: 1 DF, Q4H
     Route: 048
  4. LISINOPRIL. [Concomitant]
     Active Substance: LISINOPRIL
     Indication: PAIN
     Dosage: 500 MG, UNK (EVERY 6 HR)
     Route: 065
  5. PROMACTA [Suspect]
     Active Substance: ELTROMBOPAG OLAMINE
     Indication: IMMUNE THROMBOCYTOPENIC PURPURA
     Dosage: 50 MG, UNK
     Route: 048
     Dates: start: 20170213, end: 20170321
  6. ZESTRIL [Concomitant]
     Active Substance: LISINOPRIL
     Indication: PRODUCT USED FOR UNKNOWN INDICATION
     Dosage: 1 DF, BID
     Route: 048
  7. MYCIFRADIN [Concomitant]
     Active Substance: NEOMYCIN SULFATE
     Indication: PRODUCT USED FOR UNKNOWN INDICATION
     Dosage: 2 DF, UNK (TAKE 2 TABLETS AT 2:00 PM AND 8: 00 PM) THE DAY BEFORE SURGERY
  8. ZANTAC [Concomitant]
     Active Substance: RANITIDINE HYDROCHLORIDE
     Indication: DYSPEPSIA
     Dosage: 75 MG, BID AS NEEDED
     Route: 048
  9. ZOCOR [Concomitant]
     Active Substance: SIMVASTATIN
     Indication: PRODUCT USED FOR UNKNOWN INDICATION
     Dosage: 1 DF BEDTIME
     Route: 048
  10. FERROUS SULFATE. [Concomitant]
     Active Substance: FERROUS SULFATE
     Indication: PRODUCT USED FOR UNKNOWN INDICATION
     Dosage: 325 MG, (WITH BREAKFAST)
     Route: 048
  11. PROMACTA [Suspect]
     Active Substance: ELTROMBOPAG OLAMINE
     Dosage: 50 MG, QD
     Route: 048
     Dates: start: 20180209
  12. EFUDEX [Concomitant]
     Active Substance: FLUOROURACIL
     Indication: PRODUCT USED FOR UNKNOWN INDICATION
     Dosage: 40 G, UNK
     Route: 065
  13. PROMACTA [Suspect]
     Active Substance: ELTROMBOPAG OLAMINE
     Dosage: 62.5 MG, UNK
     Route: 048
     Dates: start: 20170522
  14. PROMACTA [Suspect]
     Active Substance: ELTROMBOPAG OLAMINE
     Dosage: 75 MG, QD
     Route: 048
  15. GLUCOPHAGE [Concomitant]
     Active Substance: METFORMIN HYDROCHLORIDE
     Indication: PRODUCT USED FOR UNKNOWN INDICATION
     Dosage: 1 DF, BID WITH MEALS
     Route: 048
  16. FLAGYL [Concomitant]
     Active Substance: METRONIDAZOLE\METRONIDAZOLE HYDROCHLORIDE
     Indication: PRODUCT USED FOR UNKNOWN INDICATION
     Dosage: 1 DF, QD
     Route: 048
  17. TYLENOL [Concomitant]
     Active Substance: ACETAMINOPHEN
     Indication: PAIN
     Dosage: 500 MG, Q6H (PRN)
     Route: 048
  18. LANTUS [Concomitant]
     Active Substance: INSULIN GLARGINE
     Indication: PRODUCT USED FOR UNKNOWN INDICATION
     Dosage: 0.18 ML, UNK (18 UNITS TOTAL)
     Route: 065
  19. PROMACTA [Suspect]
     Active Substance: ELTROMBOPAG OLAMINE
     Dosage: 75 MG, UNK
     Route: 048
     Dates: start: 20170322, end: 20170404
  20. PROMACTA [Suspect]
     Active Substance: ELTROMBOPAG OLAMINE
     Dosage: 50 MG, UNK
     Route: 048
     Dates: start: 20170405, end: 20170521
  21. PRINIVIL [Concomitant]
     Active Substance: LISINOPRIL
     Indication: PRODUCT USED FOR UNKNOWN INDICATION
     Dosage: 1 DF, BID
     Route: 048
  22. TOPROL XL [Concomitant]
     Active Substance: METOPROLOL SUCCINATE
     Indication: PRODUCT USED FOR UNKNOWN INDICATION
     Dosage: 25 MG, QD
     Route: 048
  23. ZOLOFT [Concomitant]
     Active Substance: SERTRALINE HYDROCHLORIDE
     Indication: PRODUCT USED FOR UNKNOWN INDICATION
     Dosage: 1 DF, QD
     Route: 048
  24. ZYLOPRIM [Concomitant]
     Active Substance: ALLOPURINOL
     Indication: PRODUCT USED FOR UNKNOWN INDICATION
     Dosage: 1 DF, QD
     Route: 048
     Dates: start: 20180411
  25. LEVAQUIN [Concomitant]
     Active Substance: LEVOFLOXACIN
     Indication: PRODUCT USED FOR UNKNOWN INDICATION
     Route: 065

REACTIONS (42)
  - Sepsis [Unknown]
  - Abdominal discomfort [Unknown]
  - Metastases to adrenals [Unknown]
  - Nausea [Unknown]
  - Microalbuminuria [Not Recovered/Not Resolved]
  - Lymphocyte count decreased [Unknown]
  - Bacteraemia [Not Recovered/Not Resolved]
  - Colon cancer [Recovered/Resolved]
  - Nephrolithiasis [Unknown]
  - Arteriosclerosis [Unknown]
  - Essential hypertension [Not Recovered/Not Resolved]
  - Hypercholesterolaemia [Unknown]
  - Gout [Unknown]
  - Red blood cell count decreased [Unknown]
  - Ophthalmic herpes zoster [Unknown]
  - Constipation [Unknown]
  - Herpes simplex [Unknown]
  - Pyrexia [Unknown]
  - Nausea [Recovered/Resolved]
  - Prostatomegaly [Unknown]
  - Diverticulum [Unknown]
  - Rash macular [Unknown]
  - Abdominal pain [Recovered/Resolved]
  - Vomiting [Recovered/Resolved]
  - Immunosuppression [Unknown]
  - Prostate cancer metastatic [Not Recovered/Not Resolved]
  - Metastases to bone [Not Recovered/Not Resolved]
  - Metastases to liver [Unknown]
  - Platelet count decreased [Recovered/Resolved]
  - Renal cyst [Unknown]
  - Type 2 diabetes mellitus [Not Recovered/Not Resolved]
  - Periarthritis calcarea [Unknown]
  - Haemoglobin decreased [Unknown]
  - Erythema [Unknown]
  - Rash [Unknown]
  - Infection [Unknown]
  - Bacterial infection [Recovered/Resolved]
  - White blood cell count increased [Unknown]
  - Red cell distribution width increased [Unknown]
  - Haematocrit decreased [Unknown]
  - Hiatus hernia [Unknown]
  - Hypotension [Unknown]

NARRATIVE: CASE EVENT DATE: 20170809
